FAERS Safety Report 25399089 (Version 2)
Quarter: 2025Q3

REPORT INFORMATION
  Report Type: Spontaneous
  Country: MX (occurrence: MX)
  Receive Date: 20250605
  Receipt Date: 20250710
  Transmission Date: 20251021
  Serious: Yes (Hospitalization)
  Sender: NOVO NORDISK
  Company Number: MX-NOVOPROD-1443334

PATIENT
  Age: 42 Year
  Sex: Male
  Weight: 93 kg

DRUGS (6)
  1. WEGOVY [Suspect]
     Active Substance: SEMAGLUTIDE
     Indication: Obesity
     Dosage: 0.5 MG, QW
     Route: 058
     Dates: start: 202504
  2. PREGABALIN [Concomitant]
     Active Substance: PREGABALIN
     Indication: Spinal disorder
  3. DULOXETINE [Concomitant]
     Active Substance: DULOXETINE
     Indication: Spinal disorder
  4. ACETAMINOPHEN [Concomitant]
     Active Substance: ACETAMINOPHEN
     Indication: Spinal disorder
  5. SOLORO 7 [Concomitant]
     Indication: Spinal disorder
     Route: 062
  6. NOR TENZ [Concomitant]
     Indication: Ocular hypertension
     Dosage: 2 GTT (DROPS), BID (1 DROP IN THE MORNING AND 1 DROP IN THE EVENING IN EACH EYE)

REACTIONS (2)
  - Intervertebral disc protrusion [Not Recovered/Not Resolved]
  - Product use issue [Unknown]

NARRATIVE: CASE EVENT DATE: 20250401
